FAERS Safety Report 4708413-5 (Version None)
Quarter: 2005Q3

REPORT INFORMATION
  Report Type: 
  Country: None (occurrence: None)
  Receive Date: 20050706
  Receipt Date: 20050628
  Transmission Date: 20060218
  Serious: Yes (Other)
  Sender: FDA-Public Use
  Company Number: 163-20785-04020669

PATIENT
  Age: 77 Year
  Sex: Female

DRUGS (3)
  1. THALOMID [Suspect]
     Indication: MULTIPLE MYELOMA
     Dosage: 50 MG, DAILY, ORAL; 50 MG, EVERY OTHER DAY, ORAL
     Route: 048
     Dates: start: 20031118, end: 20040501
  2. THALOMID [Suspect]
     Indication: MULTIPLE MYELOMA
     Dosage: 50 MG, DAILY, ORAL; 50 MG, EVERY OTHER DAY, ORAL
     Route: 048
     Dates: start: 20040528, end: 20050210
  3. ZOMETA [Suspect]
     Dates: start: 20031001, end: 20031101

REACTIONS (7)
  - AMYLOIDOSIS [None]
  - DIALYSIS [None]
  - HAEMODIALYSIS [None]
  - NAUSEA [None]
  - OEDEMA PERIPHERAL [None]
  - PARAESTHESIA [None]
  - RENAL FAILURE CHRONIC [None]
